FAERS Safety Report 20601591 (Version 1)
Quarter: 2022Q1

REPORT INFORMATION
  Report Type: Spontaneous
  Country: NL (occurrence: NL)
  Receive Date: 20220316
  Receipt Date: 20220316
  Transmission Date: 20220423
  Serious: Yes (Hospitalization)
  Sender: FDA-Public Use
  Company Number: None

PATIENT
  Sex: Female
  Weight: 98 kg

DRUGS (4)
  1. OXYCODONE [Suspect]
     Active Substance: OXYCODONE
     Indication: Postoperative analgesia
     Dosage: 30 MILLIGRAM DAILY; 6XDD 1 TABLET,OXYCODON TABLET 5MG / BRAND NAME NOT SPECIFIED
     Route: 065
     Dates: start: 2019, end: 20211125
  2. OXYCODONE [Suspect]
     Active Substance: OXYCODONE
     Dosage: ONLY TOOK 1 OR 2 OXYCODONE, THERAPY  END DATE: NOT ASKED, UNIT DOSE: 10MG; ?OXYCODON TABLET 5MG / BR
     Route: 065
     Dates: start: 2019
  3. OXYCODONE [Suspect]
     Active Substance: OXYCODONE
     Dosage: ONLY TOOK 1 OR 2 OXYCODONE,  THERAPY  END DATE: NOT ASKED, UNIT DOSE: 5MG; OXYCODON TABLET 5MG / BRA
     Route: 065
     Dates: start: 2019
  4. GABAPENTIN [Concomitant]
     Active Substance: GABAPENTIN
     Dosage: 300 MG, FORM STRENGTH: 300MG,THERAPY START DATE AND END DATE: ASKU,BRAND NAME NOT SPECIFIED

REACTIONS (5)
  - Confusional state [Recovering/Resolving]
  - Psychotic disorder [Recovering/Resolving]
  - Somnolence [Recovering/Resolving]
  - Headache [Recovering/Resolving]
  - Amnesia [Recovering/Resolving]
